FAERS Safety Report 7014129-5 (Version None)
Quarter: 2010Q3

REPORT INFORMATION
  Report Type: 
  Country: None (occurrence: None)
  Receive Date: 20100927
  Receipt Date: 20100915
  Transmission Date: 20110219
  Serious: Yes (Hospitalization)
  Sender: FDA-Public Use
  Company Number: GB-RB-015482-10

PATIENT
  Sex: Male

DRUGS (3)
  1. SUBOXONE [Suspect]
     Indication: PRODUCT USED FOR UNKNOWN INDICATION
     Route: 065
  2. SUBOXONE [Suspect]
     Route: 065
     Dates: end: 20100901
  3. SUBOXONE [Suspect]
     Dosage: DOSING DETAILS UNKNOWN.
     Route: 065

REACTIONS (2)
  - OVERDOSE [None]
  - PANCREATITIS ACUTE [None]
